FAERS Safety Report 7690336-3 (Version None)
Quarter: 2011Q3

REPORT INFORMATION
  Report Type: 
  Country: None (occurrence: None)
  Receive Date: 20110817
  Receipt Date: 20110817
  Transmission Date: 20111222
  Serious: Yes (Hospitalization)
  Sender: FDA-Public Use
  Company Number: None

PATIENT
  Age: 83 Year
  Sex: Female
  Weight: 60 kg

DRUGS (8)
  1. ASPIRIN [Concomitant]
  2. HEPARIN SODIUM [Concomitant]
  3. ZOCOR [Concomitant]
  4. DIGOXIN [Suspect]
     Dosage: 0.25 MG DAILY PO
     Route: 048
     Dates: start: 20110501
  5. ATENOLOL [Concomitant]
  6. DIGOXIN [Suspect]
     Dosage: 0.25MG EVERY 6 HOURS IV
     Route: 042
     Dates: start: 20110430
  7. ZOLOFT [Concomitant]
  8. AMIODARONE HCL [Concomitant]

REACTIONS (1)
  - BRADYCARDIA [None]
